FAERS Safety Report 16114596 (Version 2)
Quarter: 2019Q4

REPORT INFORMATION
  Report Type: Spontaneous
  Country: DK (occurrence: DK)
  Receive Date: 20190325
  Receipt Date: 20191216
  Transmission Date: 20200122
  Serious: Yes (Hospitalization)
  Sender: FDA-Public Use
  Company Number: DK-TEVA-2019-DK-1027463

PATIENT
  Age: 75 Year
  Sex: Female

DRUGS (2)
  1. PREDNISOLONE. [Suspect]
     Active Substance: PREDNISOLONE
     Indication: POLYMYALGIA RHEUMATICA
     Dosage: 25 MILLIGRAM DAILY;
     Route: 048
     Dates: start: 20181127, end: 20181204
  2. PARACETAMOL [Concomitant]
     Active Substance: ACETAMINOPHEN
     Indication: PAIN
     Route: 048
     Dates: start: 20181127

REACTIONS (9)
  - Psychotic symptom [Unknown]
  - Mania [Recovered/Resolved]
  - Swelling face [Unknown]
  - Anxiety disorder [Recovering/Resolving]
  - Persistent depressive disorder [Recovering/Resolving]
  - Psychomotor hyperactivity [Unknown]
  - Rash [Unknown]
  - Hallucination, auditory [Unknown]
  - Peripheral swelling [Unknown]

NARRATIVE: CASE EVENT DATE: 20181203
